FAERS Safety Report 6873935-8 (Version None)
Quarter: 2010Q3

REPORT INFORMATION
  Report Type: 
  Country: None (occurrence: None)
  Receive Date: 20100723
  Receipt Date: 20090407
  Transmission Date: 20110219
  Serious: No
  Sender: FDA-Public Use
  Company Number: US-PFIZER INC-2009198452

PATIENT
  Sex: Female

DRUGS (3)
  1. CHANTIX [Suspect]
     Indication: SMOKING CESSATION THERAPY
     Dosage: 0.5 MG, 2X/DAY
     Route: 048
     Dates: start: 20090325
  2. ATORVASTATIN [Concomitant]
     Dosage: UNKNOWN
  3. DRUG, UNSPECIFIED [Concomitant]
     Dosage: UNKNOWN

REACTIONS (2)
  - NAUSEA [None]
  - VOMITING [None]
